FAERS Safety Report 12006449 (Version 1)
Quarter: 2016Q1

REPORT INFORMATION
  Report Type: Spontaneous
  Country: US (occurrence: US)
  Receive Date: 20160204
  Receipt Date: 20160204
  Transmission Date: 20160526
  Serious: Yes (Other)
  Sender: FDA-Public Use
  Company Number: US-SA-2016SA018544

PATIENT
  Age: 84 Year
  Sex: Female

DRUGS (1)
  1. LEFLUNOMIDE WINTHROP [Suspect]
     Active Substance: LEFLUNOMIDE
     Indication: RHEUMATOID ARTHRITIS
     Route: 065
     Dates: start: 2013

REACTIONS (5)
  - Sciatica [Unknown]
  - Fall [Unknown]
  - Osteoarthritis [Unknown]
  - Peroneal nerve palsy [Unknown]
  - Head injury [Unknown]
